FAERS Safety Report 22115583 (Version 2)
Quarter: 2023Q2

REPORT INFORMATION
  Report Type: Report from Study
  Country: NL (occurrence: NL)
  Receive Date: 20230320
  Receipt Date: 20230405
  Transmission Date: 20230721
  Serious: Yes (Hospitalization, Other)
  Sender: FDA-Public Use
  Company Number: NL-BEH-2023155880

PATIENT
  Age: 75 Year
  Sex: Male
  Weight: 90 kg

DRUGS (63)
  1. PHENYTOIN [Suspect]
     Active Substance: PHENYTOIN
     Indication: Epilepsy
     Dosage: 92 MILLIGRAM
     Route: 065
     Dates: end: 20221006
  2. PRIVIGEN [Suspect]
     Active Substance: HUMAN IMMUNOGLOBULIN G
     Indication: Epilepsy
     Dosage: 175 GRAM, TOTAL
     Route: 042
     Dates: start: 20221006, end: 20221010
  3. PRIVIGEN [Suspect]
     Active Substance: HUMAN IMMUNOGLOBULIN G
     Dosage: UNK
     Route: 042
     Dates: start: 202210, end: 202210
  4. PRIVIGEN [Suspect]
     Active Substance: HUMAN IMMUNOGLOBULIN G
     Dosage: UNK
     Route: 042
     Dates: start: 202210, end: 202210
  5. PRIVIGEN [Suspect]
     Active Substance: HUMAN IMMUNOGLOBULIN G
     Dosage: 35 GRAM, QD
     Route: 042
     Dates: start: 20221027, end: 20221031
  6. PRIVIGEN [Suspect]
     Active Substance: HUMAN IMMUNOGLOBULIN G
     Dosage: 350 GRAM, TOTAL
     Route: 042
     Dates: start: 20221006, end: 20221031
  7. PRIVIGEN [Suspect]
     Active Substance: HUMAN IMMUNOGLOBULIN G
     Dosage: UNK
     Route: 042
     Dates: start: 202210, end: 202210
  8. METFORMIN HYDROCHLORIDE [Concomitant]
     Active Substance: METFORMIN HYDROCHLORIDE
     Indication: Type 2 diabetes mellitus
     Dosage: 1000 MILLIGRAM
     Route: 065
  9. ANHYDROUS DEXTROSE [Concomitant]
     Active Substance: ANHYDROUS DEXTROSE
     Indication: Hypernatraemia
     Dosage: UNK
     Route: 042
     Dates: start: 20221010
  10. MOVICOLON [Concomitant]
     Active Substance: POLYETHYLENE GLYCOL 3350\POTASSIUM CHLORIDE\SODIUM BICARBONATE\SODIUM CHLORIDE
     Indication: Ileus
     Dosage: UNK
     Route: 065
  11. PIPERACILLIN SODIUM\TAZOBACTAM SODIUM [Concomitant]
     Active Substance: PIPERACILLIN SODIUM\TAZOBACTAM SODIUM
     Indication: Respiratory failure
     Dosage: UNK
     Route: 065
  12. LACOSAMIDE [Concomitant]
     Active Substance: LACOSAMIDE
     Indication: Gamma-glutamyltransferase increased
     Dosage: 100 MILLIGRAM
     Route: 065
     Dates: start: 20221007
  13. LACOSAMIDE [Concomitant]
     Active Substance: LACOSAMIDE
     Indication: Generalised tonic-clonic seizure
     Dosage: 50 MILLIGRAM
     Route: 065
     Dates: start: 20221006, end: 20221006
  14. LACOSAMIDE [Concomitant]
     Active Substance: LACOSAMIDE
     Indication: Status epilepticus
     Dosage: 150 MILLIGRAM, BID
     Route: 065
     Dates: start: 202210
  15. LACOSAMIDE [Concomitant]
     Active Substance: LACOSAMIDE
     Dosage: 100 MILLIGRAM, TOTAL
     Route: 065
     Dates: start: 202210, end: 202210
  16. OXYGEN [Concomitant]
     Active Substance: OXYGEN
     Indication: Dyspnoea
     Dosage: 1.5 LITER
     Route: 065
  17. NITRAZEPAM [Concomitant]
     Active Substance: NITRAZEPAM
     Indication: Generalised tonic-clonic seizure
     Dosage: 10 MILLIGRAM, QD (5 MG, BID)
     Route: 065
     Dates: start: 20221112, end: 20221112
  18. NITRAZEPAM [Concomitant]
     Active Substance: NITRAZEPAM
     Dosage: 15 MILLIGRAM, QD (5 MG TID)
     Route: 065
     Dates: start: 20221117
  19. NITRAZEPAM [Concomitant]
     Active Substance: NITRAZEPAM
     Dosage: 15 MILLIGRAM, QD (5 MG TID)
     Route: 065
     Dates: start: 20221113, end: 20221114
  20. PREDNISONE [Concomitant]
     Active Substance: PREDNISONE
     Indication: Type 2 diabetes mellitus
     Dosage: 15 MILLIGRAM, QD
     Route: 048
  21. PREDNISONE [Concomitant]
     Active Substance: PREDNISONE
     Dosage: 60 MILLIGRAM, QD
     Route: 065
  22. PREDNISONE [Concomitant]
     Active Substance: PREDNISONE
     Dosage: 40 MILLIGRAM, QD
     Route: 065
     Dates: end: 202211
  23. CEFTRIAXONE [Concomitant]
     Active Substance: CEFTRIAXONE
     Dosage: 2 GRAM, QD
     Route: 042
     Dates: start: 20221026, end: 20221030
  24. CEFTRIAXONE [Concomitant]
     Active Substance: CEFTRIAXONE
     Dosage: 2 GRAM, QD
     Route: 042
     Dates: start: 20221101, end: 20221105
  25. CEFTRIAXONE [Concomitant]
     Active Substance: CEFTRIAXONE
     Dosage: 2 GRAM, QD
     Route: 042
     Dates: start: 20221011, end: 20221015
  26. POTASSIUM [Concomitant]
     Active Substance: POTASSIUM
     Indication: Hypokalaemia
     Dosage: UNK
     Route: 065
  27. POTASSIUM [Concomitant]
     Active Substance: POTASSIUM
     Dosage: 1 MMOL/L 30ML, BID
     Route: 065
     Dates: start: 202302
  28. POTASSIUM [Concomitant]
     Active Substance: POTASSIUM
     Dosage: UNK
     Route: 065
     Dates: start: 202302
  29. LANTUS [Concomitant]
     Active Substance: INSULIN GLARGINE
     Indication: Type 2 diabetes mellitus
     Dosage: 30 INTERNATIONAL UNIT
     Route: 065
  30. MAGNESIUM [Concomitant]
     Active Substance: MAGNESIUM
     Indication: Hypomagnesaemia
     Dosage: UNK
     Route: 065
  31. MIDAZOLAM [Concomitant]
     Active Substance: MIDAZOLAM
     Indication: Status epilepticus
     Dosage: 0.15 MILLIGRAM/KILOGRAM, QH
     Route: 065
     Dates: start: 20221026, end: 20221102
  32. NOVORAPID [Concomitant]
     Active Substance: INSULIN ASPART
     Indication: Type 2 diabetes mellitus
     Dosage: UNK, PRN
     Route: 065
  33. RITUXIMAB [Concomitant]
     Active Substance: RITUXIMAB
     Dosage: 1000 MILLIGRAM
     Route: 042
     Dates: end: 20221118
  34. RITUXIMAB [Concomitant]
     Active Substance: RITUXIMAB
     Dosage: 1000 MILLIGRAM
     Route: 042
     Dates: end: 20221105
  35. RITUXIMAB [Concomitant]
     Active Substance: RITUXIMAB
     Dosage: 1000 MILLIGRAM
     Route: 065
     Dates: start: 20221118, end: 20221118
  36. RITUXIMAB [Concomitant]
     Active Substance: RITUXIMAB
     Dosage: 1000 MILLIGRAM
     Route: 065
     Dates: start: 20221104, end: 20221104
  37. REMIFENTANIL [Concomitant]
     Active Substance: REMIFENTANIL
     Dosage: UNK
     Route: 065
  38. CIPROFLOXACIN [Concomitant]
     Active Substance: CIPROFLOXACIN
     Dosage: 1200 MILLIGRAM, QD (400 MG, TID)
     Route: 042
     Dates: start: 20221026, end: 20221104
  39. VALPROIC ACID [Concomitant]
     Active Substance: VALPROIC ACID
     Dosage: UNK (LOADING DOSE)
     Route: 065
     Dates: start: 20221109
  40. CEFUROXIME [Concomitant]
     Active Substance: CEFUROXIME
     Indication: Ileus paralytic
     Dosage: 175 GRAM, TOTAL
     Route: 065
     Dates: start: 20221006, end: 20221010
  41. CEFUROXIME [Concomitant]
     Active Substance: CEFUROXIME
     Indication: Pyrexia
     Dosage: UNK
     Route: 065
  42. CARBIMAZOLE [Concomitant]
     Active Substance: CARBIMAZOLE
     Dosage: 400 MILLIGRAM, QD (200 MG, BID)
     Route: 065
     Dates: start: 20221104
  43. CARBIMAZOLE [Concomitant]
     Active Substance: CARBIMAZOLE
     Dosage: 600 MILLIGRAM, QD (300 MG, BID)
     Route: 065
     Dates: start: 20221109
  44. POLYETHYLENE GLYCOLS [Concomitant]
     Active Substance: POLYETHYLENE GLYCOLS
     Indication: Ileus paralytic
     Dosage: UNK
     Route: 065
     Dates: end: 202301
  45. LEVOCETIRIZINE [Concomitant]
     Active Substance: LEVOCETIRIZINE
     Dosage: 2500 MILLIGRAM, QD (1250 MG, BID)
     Route: 065
     Dates: start: 20221111
  46. LEVOCETIRIZINE [Concomitant]
     Active Substance: LEVOCETIRIZINE
     Dosage: UNK (LOADING DOSE)
     Route: 065
     Dates: start: 20221109
  47. LEVOCETIRIZINE [Concomitant]
     Active Substance: LEVOCETIRIZINE
     Dosage: 2000 MILLIGRAM, QD (1000 MG, BID)
     Route: 065
  48. LEVOCETIRIZINE [Concomitant]
     Active Substance: LEVOCETIRIZINE
     Dosage: UNK (LOADING DOSE)
     Route: 065
     Dates: start: 20221111
  49. LEVOCETIRIZINE [Concomitant]
     Active Substance: LEVOCETIRIZINE
     Dosage: 600 MG, QD, (300 MILLIGRAM, BID)
     Route: 065
  50. HALDOL [Concomitant]
     Active Substance: HALOPERIDOL
     Indication: Delirium
     Dosage: 1 MILLIGRAM, QD
     Route: 065
     Dates: start: 20221007
  51. LIRAGLUTIDE [Concomitant]
     Active Substance: LIRAGLUTIDE
     Indication: Type 2 diabetes mellitus
     Dosage: 1.2 MILLIGRAM
     Route: 065
  52. METHYLPREDNISOLONE [Concomitant]
     Active Substance: METHYLPREDNISOLONE
     Indication: Type 2 diabetes mellitus
     Dosage: 1 GRAM
     Route: 042
     Dates: start: 20221017, end: 20221021
  53. PROPOFOL [Concomitant]
     Active Substance: PROPOFOL
     Indication: Status epilepticus
     Dosage: 2 MILLIGRAM/KILOGRAM, QH
     Route: 065
     Dates: start: 20221026, end: 202211
  54. PROPOFOL [Concomitant]
     Active Substance: PROPOFOL
     Dosage: 1 MILLIGRAM/KILOGRAM, QH
     Route: 065
     Dates: start: 202211, end: 202211
  55. PROPOFOL [Concomitant]
     Active Substance: PROPOFOL
     Dosage: 2 MILLIGRAM/KILOGRAM, QH
     Route: 065
     Dates: start: 20221103, end: 20221106
  56. LEVETIRACETAM [Concomitant]
     Active Substance: LEVETIRACETAM
     Indication: Status epilepticus
     Dosage: 1250 MILLIGRAM, BID
     Route: 065
  57. LEVETIRACETAM [Concomitant]
     Active Substance: LEVETIRACETAM
     Dosage: 750 MILLIGRAM, BID
     Route: 065
     Dates: start: 202210
  58. LEVETIRACETAM [Concomitant]
     Active Substance: LEVETIRACETAM
     Dosage: 1000 MILLIGRAM, BID
     Route: 065
  59. INSULIN NOS [Concomitant]
     Active Substance: INSULIN NOS
     Indication: Hyperglycaemia
     Dosage: 2 INTERNATIONAL UNIT, QH
     Route: 042
     Dates: start: 202210
  60. INSULINE GLULISINE [Concomitant]
     Indication: Type 2 diabetes mellitus
     Dosage: 12 INTERNATIONAL UNIT
     Route: 065
  61. CARBAMAZEPINE [Concomitant]
     Active Substance: CARBAMAZEPINE
     Dosage: 200 MILLIGRAM, BID
     Route: 065
  62. CARBAMAZEPINE [Concomitant]
     Active Substance: CARBAMAZEPINE
     Dosage: 300 MILLIGRAM, BID
     Route: 065
  63. NADROPARIN [Concomitant]
     Active Substance: NADROPARIN
     Indication: Pulmonary embolism
     Dosage: 19000 INTERNATIONAL UNIT, QD
     Route: 065
     Dates: start: 202210

REACTIONS (19)
  - Diarrhoea [Not Recovered/Not Resolved]
  - Clostridium difficile colitis [Not Recovered/Not Resolved]
  - Abdominal distension [Not Recovered/Not Resolved]
  - Escherichia infection [Recovered/Resolved]
  - Enterobacter infection [Recovered/Resolved]
  - Urinary retention [Not Recovered/Not Resolved]
  - Delirium [Not Recovered/Not Resolved]
  - Urinary tract infection [Recovered/Resolved]
  - Vomiting [Not Recovered/Not Resolved]
  - Penis disorder [Unknown]
  - Penile ulceration [Not Recovered/Not Resolved]
  - Hypoglycaemia [Not Recovered/Not Resolved]
  - Oral candidiasis [Not Recovered/Not Resolved]
  - Agitation [Not Recovered/Not Resolved]
  - Hyperglycaemia [Not Recovered/Not Resolved]
  - Alanine aminotransferase increased [Not Recovered/Not Resolved]
  - Blood alkaline phosphatase increased [Not Recovered/Not Resolved]
  - Off label use [Unknown]
  - Drug ineffective for unapproved indication [Unknown]

NARRATIVE: CASE EVENT DATE: 20221003
